FAERS Safety Report 25439310 (Version 2)
Quarter: 2025Q2

REPORT INFORMATION
  Report Type: Spontaneous
  Country: US (occurrence: US)
  Receive Date: 20250616
  Receipt Date: 20250626
  Transmission Date: 20250716
  Serious: Yes (Life-Threatening, Hospitalization)
  Sender: TEVA
  Company Number: US-TEVA-VS-3340205

PATIENT
  Age: 73 Year
  Sex: Male

DRUGS (1)
  1. HYDROCHLOROTHIAZIDE\LOSARTAN [Suspect]
     Active Substance: HYDROCHLOROTHIAZIDE\LOSARTAN
     Indication: Hypertension
     Route: 048

REACTIONS (2)
  - Non-cardiogenic pulmonary oedema [Recovered/Resolved]
  - Acute respiratory failure [Recovered/Resolved]
